FAERS Safety Report 15983442 (Version 7)
Quarter: 2019Q3

REPORT INFORMATION
  Report Type: Report from Study
  Country: US (occurrence: US)
  Receive Date: 20190220
  Receipt Date: 20190829
  Transmission Date: 20191004
  Serious: Yes (Life-Threatening, Hospitalization, Other)
  Sender: FDA-Public Use
  Company Number: PHEH2019US007143

PATIENT
  Age: 76 Year
  Sex: Male

DRUGS (1)
  1. ENTRESTO [Suspect]
     Active Substance: SACUBITRIL\VALSARTAN
     Indication: CARDIAC FAILURE
     Dosage: 1 DF, (24/26MG) UNK
     Route: 048

REACTIONS (12)
  - Cardiac arrest [Unknown]
  - Swelling [Recovering/Resolving]
  - Blood pressure abnormal [Unknown]
  - Dizziness [Recovering/Resolving]
  - Atrial fibrillation [Unknown]
  - Head injury [Unknown]
  - Myocardial infarction [Unknown]
  - Cough [Unknown]
  - Syncope [Recovering/Resolving]
  - Fall [Unknown]
  - Loss of consciousness [Unknown]
  - Heart rate decreased [Unknown]

NARRATIVE: CASE EVENT DATE: 20190406
